FAERS Safety Report 4752810-9 (Version None)
Quarter: 2005Q3

REPORT INFORMATION
  Report Type: 
  Country: None (occurrence: None)
  Receive Date: 20050823
  Receipt Date: 20050805
  Transmission Date: 20060218
  Serious: Yes (Other)
  Sender: FDA-Public Use
  Company Number: US_0410107410

PATIENT
  Age: 56 Year
  Sex: Female
  Weight: 86 kg

DRUGS (19)
  1. ZYPREXA [Suspect]
     Indication: SCHIZOAFFECTIVE DISORDER
     Dosage: 30 MG AT BEDTIME
     Dates: start: 19981228
  2. SERZONE [Concomitant]
  3. KLONOPIN [Concomitant]
  4. ALLEGRA [Concomitant]
  5. MEVACOR [Concomitant]
  6. FLONASE [Concomitant]
  7. CELEXA [Concomitant]
  8. ATENOLOL [Concomitant]
  9. DALMANE [Concomitant]
  10. HYDROCHLOROTHIAZIDE [Concomitant]
  11. CELEBREX [Concomitant]
  12. TRILEPTAL [Concomitant]
  13. PAXIL [Concomitant]
  14. LASIX [Concomitant]
  15. TRIMETREXATE [Concomitant]
  16. BENADRYL [Concomitant]
  17. EFFEXOR [Concomitant]
  18. KLONOPIN [Concomitant]
  19. DEPAKOTE [Concomitant]

REACTIONS (26)
  - AKATHISIA [None]
  - ANGINA PECTORIS [None]
  - ANKLE FRACTURE [None]
  - ANXIETY [None]
  - BACTERIAL INFECTION [None]
  - BRAIN HYPOXIA [None]
  - CAROTID ARTERY OCCLUSION [None]
  - DEPRESSION [None]
  - DIABETES MELLITUS [None]
  - DIABETES MELLITUS NON-INSULIN-DEPENDENT [None]
  - DISSOCIATION [None]
  - DYSPNOEA [None]
  - FALL [None]
  - HAEMORRHAGE [None]
  - HALLUCINATION, AUDITORY [None]
  - INSOMNIA [None]
  - IRRITABILITY [None]
  - LOWER LIMB FRACTURE [None]
  - NECK INJURY [None]
  - PANIC ATTACK [None]
  - PERICARDIAL EFFUSION [None]
  - PNEUMONIA KLEBSIELLA [None]
  - PSYCHOTIC DISORDER [None]
  - SCHIZOAFFECTIVE DISORDER [None]
  - SELF-INJURIOUS IDEATION [None]
  - SOMNOLENCE [None]
